FAERS Safety Report 19203887 (Version 1)
Quarter: 2021Q2

REPORT INFORMATION
  Report Type: Spontaneous
  Country: CA (occurrence: CA)
  Receive Date: 20210501
  Receipt Date: 20210501
  Transmission Date: 20210717
  Serious: Yes (Other)
  Sender: FDA-Public Use
  Company Number: CA-APC-202100152

PATIENT
  Age: 15 Year
  Sex: Female

DRUGS (3)
  1. ACETAZOLAMIDE. [Concomitant]
     Active Substance: ACETAZOLAMIDE
     Indication: IDIOPATHIC INTRACRANIAL HYPERTENSION
     Route: 065
  2. TESTOSTERONE. [Suspect]
     Active Substance: TESTOSTERONE
     Indication: TRANSGENDER HORMONAL THERAPY
     Route: 065
  3. TOPIRAMATE. [Suspect]
     Active Substance: TOPIRAMATE
     Indication: IDIOPATHIC INTRACRANIAL HYPERTENSION
     Route: 065

REACTIONS (6)
  - Drug ineffective for unapproved indication [Recovered/Resolved]
  - Papilloedema [Recovered/Resolved]
  - Off label use [Recovered/Resolved]
  - Hormone level abnormal [Recovered/Resolved]
  - Idiopathic intracranial hypertension [Recovered/Resolved]
  - Visual field defect [Recovered/Resolved]
